FAERS Safety Report 8362447-0 (Version None)
Quarter: 2012Q2

REPORT INFORMATION
  Report Type: 
  Country: None (occurrence: None)
  Receive Date: 20120516
  Receipt Date: 20071101
  Transmission Date: 20120825
  Serious: No
  Sender: FDA-Public Use
  Company Number: 2007BI023568

PATIENT
  Age: 50 Year
  Sex: Female

DRUGS (2)
  1. AVONEX [Concomitant]
     Indication: PRODUCT USED FOR UNKNOWN INDICATION
     Route: 030
  2. TYSABRI [Suspect]
     Indication: MULTIPLE SCLEROSIS
     Route: 042
     Dates: start: 20070322, end: 20070906

REACTIONS (3)
  - PAIN [None]
  - DRUG INEFFECTIVE [None]
  - FATIGUE [None]
